FAERS Safety Report 15559789 (Version 2)
Quarter: 2019Q1

REPORT INFORMATION
  Report Type: Spontaneous
  Country: DE (occurrence: DE)
  Receive Date: 20181029
  Receipt Date: 20190212
  Transmission Date: 20190417
  Serious: Yes (Hospitalization)
  Sender: FDA-Public Use
  Company Number: PHHY2018DE137772

PATIENT
  Sex: Male
  Weight: 60 kg

DRUGS (3)
  1. DEXAMETHASONE. [Suspect]
     Active Substance: DEXAMETHASONE
     Indication: PLASMA CELL MYELOMA
     Dosage: 20 MG, QD
     Route: 065
     Dates: start: 20180709, end: 20181025
  2. REVLIMID [Suspect]
     Active Substance: LENALIDOMIDE
     Dosage: 10 MG, QD
     Route: 048
     Dates: start: 20180723, end: 20180831
  3. REVLIMID [Suspect]
     Active Substance: LENALIDOMIDE
     Indication: PLASMA CELL MYELOMA
     Dosage: 15 MG, QD
     Route: 048
     Dates: start: 20180709, end: 20180715

REACTIONS (3)
  - Epididymitis [Not Recovered/Not Resolved]
  - Febrile infection [Recovered/Resolved]
  - Diarrhoea [Recovered/Resolved]

NARRATIVE: CASE EVENT DATE: 20180716
